FAERS Safety Report 4707556-X (Version None)
Quarter: 2005Q3

REPORT INFORMATION
  Report Type: 
  Country: None (occurrence: None)
  Receive Date: 20050706
  Receipt Date: 20050621
  Transmission Date: 20060218
  Serious: Yes (Hospitalization)
  Sender: FDA-Public Use
  Company Number: JP-JNJFOC-20050605359

PATIENT
  Age: 61 Year
  Sex: Female

DRUGS (1)
  1. TAVANIC [Suspect]
     Indication: CYSTITIS
     Dosage: 5 TIMES FOR SEVERAL DAYS

REACTIONS (2)
  - MUSCLE RUPTURE [None]
  - TENDON RUPTURE [None]
